FAERS Safety Report 6336319-7 (Version None)
Quarter: 2009Q3

REPORT INFORMATION
  Report Type: 
  Country: None (occurrence: None)
  Receive Date: 20090901
  Receipt Date: 20090821
  Transmission Date: 20100115
  Serious: Yes (Hospitalization)
  Sender: FDA-Public Use
  Company Number: SE-AMGEN-US361079

PATIENT
  Sex: Female

DRUGS (13)
  1. ENBREL [Suspect]
     Indication: PSORIATIC ARTHROPATHY
     Dosage: DOSE 50 MG WEEKLY
     Route: 065
     Dates: start: 20080305, end: 20090317
  2. ENBREL [Suspect]
     Dosage: DOSE 50 MG WEEKLY
     Dates: start: 20090604, end: 20090819
  3. METHOTREXATE [Suspect]
     Dosage: 8 TABLETS A 2,5 MG WEEKLY
     Route: 048
  4. OMEPRAZOLE [Concomitant]
     Route: 048
  5. IDEOS [Concomitant]
     Route: 048
  6. ASPIRIN [Concomitant]
     Route: 048
  7. PANODIL - SLOW RELEASE [Concomitant]
     Indication: PAIN
     Route: 065
  8. ATENOLOL [Concomitant]
     Route: 048
  9. PREDNISOLONE [Concomitant]
     Dosage: DOSE 50 MG DAILY
     Route: 065
  10. LEVOTHYROXINE SODIUM [Concomitant]
     Route: 065
  11. CIPROFLOXACIN HYDROCHLORIDE [Concomitant]
     Indication: PYELONEPHRITIS
     Route: 048
  12. ALENDRONATE SODIUM [Concomitant]
     Route: 048
  13. FOLACIN [Concomitant]
     Dosage: 2 TABLETS A 5 MG WEEKLY
     Route: 048

REACTIONS (6)
  - CHEST PAIN [None]
  - DIPLOPIA [None]
  - EYE PAIN [None]
  - HEADACHE [None]
  - PYELONEPHRITIS [None]
  - VISION BLURRED [None]
